FAERS Safety Report 5347699-3 (Version None)
Quarter: 2007Q2

REPORT INFORMATION
  Report Type: 
  Country: None (occurrence: None)
  Receive Date: 20070508
  Receipt Date: 20060808
  Transmission Date: 20071010
  Serious: Yes (Hospitalization)
  Sender: FDA-Public Use
  Company Number: 235102K06USA

PATIENT
  Age: 53 Year
  Sex: Male

DRUGS (1)
  1. REBIF [Suspect]
     Indication: MULTIPLE SCLEROSIS
     Dosage: 44 MCG, 3 IN 1 WEEKS; SUBCUTANEOUS
     Route: 058
     Dates: start: 20050427

REACTIONS (11)
  - ARTHRALGIA [None]
  - COGNITIVE DISORDER [None]
  - HEADACHE [None]
  - INFLUENZA LIKE ILLNESS [None]
  - INJECTION SITE ERYTHEMA [None]
  - MULTIPLE SCLEROSIS RELAPSE [None]
  - MUSCLE SPASMS [None]
  - PYREXIA [None]
  - TINNITUS [None]
  - TREMOR [None]
  - VISION BLURRED [None]
